FAERS Safety Report 23764557 (Version 1)
Quarter: 2024Q2

REPORT INFORMATION
  Report Type: Spontaneous
  Country: US (occurrence: US)
  Receive Date: 20240420
  Receipt Date: 20240420
  Transmission Date: 20240722
  Serious: No
  Sender: FDA-Public Use
  Company Number: US-SA-SAC20240417000626

PATIENT
  Age: 49 Year
  Sex: Female

DRUGS (1)
  1. DUPIXENT [Suspect]
     Active Substance: DUPILUMAB
     Indication: Dermatitis atopic
     Dosage: 300 MG, QOW
     Route: 058

REACTIONS (3)
  - Strabismus [Unknown]
  - Condition aggravated [Unknown]
  - Dry eye [Unknown]
